FAERS Safety Report 22076618 (Version 3)
Quarter: 2023Q2

REPORT INFORMATION
  Report Type: Spontaneous
  Country: BR (occurrence: BR)
  Receive Date: 20230309
  Receipt Date: 20230410
  Transmission Date: 20230721
  Serious: Yes (Other)
  Sender: FDA-Public Use
  Company Number: BR-SA-SAC20230307000036

PATIENT
  Age: 28 Year
  Sex: Female

DRUGS (5)
  1. ENOXAPARIN SODIUM [Suspect]
     Active Substance: ENOXAPARIN SODIUM
     Indication: Product used for unknown indication
     Route: 065
  2. ASPIRIN [Suspect]
     Active Substance: ASPIRIN
  3. CALCIUM [Concomitant]
     Active Substance: CALCIUM
  4. ALDOMET [Concomitant]
     Active Substance: METHYLDOPA
     Dosage: DOSAGE: 6/6 HOURS.
  5. REGENESIS [ALENDRONATE SODIUM] [Concomitant]

REACTIONS (4)
  - Placental insufficiency [Unknown]
  - Hypercoagulation [Unknown]
  - Ultrasound Doppler abnormal [Unknown]
  - Exposure during pregnancy [Unknown]
